FAERS Safety Report 7974867-4 (Version None)
Quarter: 2011Q4

REPORT INFORMATION
  Report Type: 
  Country: None (occurrence: None)
  Receive Date: 20111213
  Receipt Date: 20111206
  Transmission Date: 20120403
  Serious: Yes (Hospitalization)
  Sender: FDA-Public Use
  Company Number: US-MERCK-1110USA03825

PATIENT
  Age: 67 Year
  Sex: Female
  Weight: 90 kg

DRUGS (6)
  1. NABUMETONE [Concomitant]
     Route: 065
  2. JANUVIA [Suspect]
     Indication: TYPE 2 DIABETES MELLITUS
     Route: 048
     Dates: end: 20111001
  3. PRINZIDE [Suspect]
     Indication: HYPERTENSION
     Route: 065
     Dates: end: 20111001
  4. OMEPRAZOLE [Concomitant]
     Route: 065
  5. PRINIVIL [Concomitant]
     Route: 065
  6. PHENERGAN HCL [Concomitant]
     Route: 065

REACTIONS (5)
  - PANCREATITIS ACUTE [None]
  - SPLENOMEGALY [None]
  - DIARRHOEA [None]
  - FOOD POISONING [None]
  - GALLBLADDER ENLARGEMENT [None]
